FAERS Safety Report 13775906 (Version 1)
Quarter: 2017Q3

REPORT INFORMATION
  Report Type: Spontaneous
  Country: DE (occurrence: DE)
  Receive Date: 20170721
  Receipt Date: 20170721
  Transmission Date: 20171127
  Serious: Yes (Death)
  Sender: FDA-Public Use
  Company Number: DE-TEVA-787221GER

PATIENT
  Age: 20 Year
  Sex: Male
  Weight: 85 kg

DRUGS (2)
  1. ISOTRETINOIN [Suspect]
     Active Substance: ISOTRETINOIN
     Route: 048
     Dates: start: 201703, end: 20170320
  2. ISOTRETINOIN [Suspect]
     Active Substance: ISOTRETINOIN
     Indication: ACNE
     Dosage: 20 MILLIGRAM DAILY;
     Route: 048
     Dates: start: 20170119, end: 201703

REACTIONS (2)
  - Depression [Fatal]
  - Completed suicide [Fatal]

NARRATIVE: CASE EVENT DATE: 201703
